FAERS Safety Report 7100301-2 (Version None)
Quarter: 2010Q4

REPORT INFORMATION
  Report Type: 
  Country: None (occurrence: None)
  Receive Date: 20101112
  Receipt Date: 20101103
  Transmission Date: 20110411
  Serious: Yes (Hospitalization)
  Sender: FDA-Public Use
  Company Number: US-AMGEN-USACT2010003670

PATIENT
  Sex: Male
  Weight: 64.5 kg

DRUGS (3)
  1. PANITUMUMAB [Suspect]
     Indication: OESOPHAGEAL ADENOCARCINOMA
     Dosage: UNK
     Route: 042
     Dates: start: 20100501
  2. CISPLATIN [Suspect]
     Dosage: UNK
     Route: 042
     Dates: start: 20100501
  3. DOCETAXEL [Suspect]
     Dosage: UNK
     Route: 042
     Dates: start: 20100501

REACTIONS (5)
  - ANAEMIA [None]
  - CONSTIPATION [None]
  - DEHYDRATION [None]
  - HYPOKALAEMIA [None]
  - URINARY RETENTION [None]
